FAERS Safety Report 21232781 (Version 2)
Quarter: 2022Q4

REPORT INFORMATION
  Report Type: Report from Study
  Country: TR (occurrence: TR)
  Receive Date: 20220819
  Receipt Date: 20221121
  Transmission Date: 20230113
  Serious: Yes (Hospitalization)
  Sender: FDA-Public Use
  Company Number: TR-ABBVIE-22K-161-4509203-00

PATIENT
  Age: 75 Year
  Sex: Male

DRUGS (3)
  1. CARBIDOPA\LEVODOPA [Suspect]
     Active Substance: CARBIDOPA\LEVODOPA
     Indication: Parkinson^s disease
     Dosage: MORNING DOSE (ML): 14.00 CONTINIOUS DOSE (ML): 3.00 EXTRA DOSE (ML): 1.00
     Route: 050
     Dates: start: 20220607
  2. CARBIDOPA\LEVODOPA [Suspect]
     Active Substance: CARBIDOPA\LEVODOPA
  3. Hydrochlorothiazide (CO-IRDA) [Concomitant]
     Indication: Hypertension
     Dosage: FORM STRENGTH: 150 MILLIGRAM
     Route: 048
     Dates: start: 2015

REACTIONS (1)
  - Infection [Recovered/Resolved]

NARRATIVE: CASE EVENT DATE: 20220808
